FAERS Safety Report 21562393 (Version 2)
Quarter: 2022Q4

REPORT INFORMATION
  Report Type: Report from Study
  Country: US (occurrence: US)
  Receive Date: 20221107
  Receipt Date: 20221205
  Transmission Date: 20230113
  Serious: Yes (Death, Hospitalization, Other)
  Sender: FDA-Public Use
  Company Number: US-BAYER-2022A138436

PATIENT
  Age: 67 Year
  Sex: Female

DRUGS (2)
  1. STIVARGA [Suspect]
     Active Substance: REGORAFENIB
     Indication: Glioblastoma
     Dosage: 160 MG, QD, FOR 21 DAYS ON, THEN 7 DAYS OFF
     Route: 048
     Dates: start: 20220929
  2. SIMVASTATIN [Concomitant]
     Active Substance: SIMVASTATIN
     Dosage: EVERY OTHER WEEK

REACTIONS (25)
  - Death [Fatal]
  - Dyspnoea [Recovering/Resolving]
  - Diarrhoea [Recovering/Resolving]
  - Acute kidney injury [Recovering/Resolving]
  - Dehydration [Recovering/Resolving]
  - Blood pressure fluctuation [Recovering/Resolving]
  - Loss of personal independence in daily activities [Recovering/Resolving]
  - Diarrhoea [Unknown]
  - Hypersomnia [Unknown]
  - Dizziness [Unknown]
  - Platelet count increased [Recovering/Resolving]
  - Blood pressure increased [Unknown]
  - Anxiety [Unknown]
  - Asthenia [Not Recovered/Not Resolved]
  - Diarrhoea [Not Recovered/Not Resolved]
  - Therapeutic response unexpected [Not Recovered/Not Resolved]
  - Off label use [None]
  - Asthenia [Recovering/Resolving]
  - Motor dysfunction [Recovering/Resolving]
  - Contusion [Recovering/Resolving]
  - Urinary incontinence [Recovering/Resolving]
  - Anal incontinence [Recovering/Resolving]
  - Tongue disorder [Recovering/Resolving]
  - Nausea [Recovering/Resolving]
  - Hypersensitivity [Not Recovered/Not Resolved]

NARRATIVE: CASE EVENT DATE: 20221001
